FAERS Safety Report 16625640 (Version 1)
Quarter: 2019Q3

REPORT INFORMATION
  Report Type: Spontaneous
  Country: US (occurrence: US)
  Receive Date: 20190612
  Receipt Date: 20190612
  Transmission Date: 20191004
  Serious: No
  Sender: FDA-Public Use
  Company Number: None

PATIENT
  Sex: Male

DRUGS (1)
  1. POTASSIUM CHLORIDE. [Suspect]
     Active Substance: POTASSIUM CHLORIDE

REACTIONS (5)
  - Hyperkalaemia [None]
  - Peritoneal dialysis [None]
  - Cardiac arrest [None]
  - Haemodialysis [None]
  - Wrong product administered [None]
